FAERS Safety Report 20968496 (Version 2)
Quarter: 2025Q1

REPORT INFORMATION
  Report Type: Spontaneous
  Country: US (occurrence: US)
  Receive Date: 20220616
  Receipt Date: 20250204
  Transmission Date: 20250408
  Serious: Yes (Hospitalization, Other)
  Sender: PFIZER
  Company Number: US-MLMSERVICE-20220602-3593185-1

PATIENT
  Age: 51 Year
  Sex: Female

DRUGS (31)
  1. LORAZEPAM [Suspect]
     Active Substance: LORAZEPAM
     Dosage: 1 MG, 2X/DAY (FREQ:12 H)
  2. CLONAZEPAM [Suspect]
     Active Substance: CLONAZEPAM
     Dosage: FREQ:12 H; 0.5MG, PRN, Q12H
  3. ZOLPIDEM [Suspect]
     Active Substance: ZOLPIDEM TARTRATE
  4. MIRTAZAPINE [Suspect]
     Active Substance: MIRTAZAPINE
     Dosage: 15 MG, 2X/DAY (FREQ:12 H)
  5. PANTOPRAZOLE [Concomitant]
     Active Substance: PANTOPRAZOLE
     Dosage: 40 MG, 1X/DAY
  6. ACETAMINOPHEN [Concomitant]
     Active Substance: ACETAMINOPHEN
     Dosage: 325 MG, 2X/DAY (FREQ:12 H)
  7. LEVOTHYROXINE [Concomitant]
     Active Substance: LEVOTHYROXINE
     Dosage: 112 UG, 1X/DAY
  8. ALBUTEROL [Concomitant]
     Active Substance: ALBUTEROL
  9. ESOMEPRAZOLE [Concomitant]
     Active Substance: ESOMEPRAZOLE
     Dosage: 40 MG, 1X/DAY
  10. SULFASALAZINE [Concomitant]
     Active Substance: SULFASALAZINE
     Dosage: 500 MG, 2X/DAY (FREQ:12 H)
  11. PRAMIPEXOLE [Concomitant]
     Active Substance: PRAMIPEXOLE
     Dosage: 0.5 MG, 3X/DAY (FREQ:8 H)
  12. MECLIZINE [Concomitant]
     Active Substance: MECLIZINE HYDROCHLORIDE
     Dosage: 25 MG, 3X/DAY (FREQ:8 H)
  13. AMLODIPINE [Concomitant]
     Active Substance: AMLODIPINE BESYLATE
     Dosage: 10 MG, 1X/DAY
  14. FISH OIL [Concomitant]
     Active Substance: FISH OIL
     Dosage: 1000 MG, 1X/DAY
  15. RISPERIDONE [Concomitant]
     Active Substance: RISPERIDONE
     Dosage: 2 MG, 1X/DAY
  16. ACETIC ACID [Concomitant]
     Active Substance: ACETIC ACID
     Dosage: 2 %, 2X/DAY (FREQ:12 H)
  17. SUCRALFATE [Concomitant]
     Active Substance: SUCRALFATE
     Dosage: 1 G, 1X/DAY
  18. FUROSEMIDE [Concomitant]
     Active Substance: FUROSEMIDE
     Dosage: 40 MG, 1X/DAY
  19. FIORICET [Concomitant]
     Active Substance: ACETAMINOPHEN\BUTALBITAL\CAFFEINE
     Route: 048
  20. MONTELUKAST [Concomitant]
     Active Substance: MONTELUKAST
     Dosage: 10 MG, 1X/DAY
  21. DULOXETINE [Concomitant]
     Active Substance: DULOXETINE
     Dosage: 60 MG, 2X/DAY (FREQ:12 H)
  22. ALBUTEROL [Concomitant]
     Active Substance: ALBUTEROL
     Route: 055
  23. PREGABALIN [Concomitant]
     Active Substance: PREGABALIN
     Dosage: 100 MG, 3X/DAY (FREQ:8 H)
  24. CELECOXIB [Concomitant]
     Active Substance: CELECOXIB
     Dosage: 200 MG, 2X/DAY (FREQ:12 H)
  25. HYDROXYCHLOROQUINE [Concomitant]
     Active Substance: HYDROXYCHLOROQUINE
     Dosage: 200 MG, 2X/DAY (FREQ:12 H)
  26. MIRABEGRON [Concomitant]
     Active Substance: MIRABEGRON
     Dosage: 25 MG, 1X/DAY
  27. BACLOFEN [Concomitant]
     Active Substance: BACLOFEN
     Dosage: 10 MG, 3X/DAY (FREQ:8 H)
  28. MEMANTINE [Concomitant]
     Active Substance: MEMANTINE
     Dosage: 10 MG, 2X/DAY (FREQ:12 H)
  29. ASPIRIN [Concomitant]
     Active Substance: ASPIRIN
     Dosage: 81 MG, 1X/DAY
  30. PRAZOSIN [Concomitant]
     Active Substance: PRAZOSIN
     Dosage: 5 MG, 1X/DAY
  31. DOCUSATE [Concomitant]
     Active Substance: DOCUSATE
     Dosage: 100 MG, 1X/DAY

REACTIONS (2)
  - Depression [Recovering/Resolving]
  - Anxiety [Recovering/Resolving]
